FAERS Safety Report 21588010 (Version 1)
Quarter: 2022Q4

REPORT INFORMATION
  Report Type: Report from Study
  Country: US (occurrence: US)
  Receive Date: 20221114
  Receipt Date: 20221114
  Transmission Date: 20230113
  Serious: Yes (Death, Other)
  Sender: FDA-Public Use
  Company Number: US-BAUSCH-BL-2022-025105

PATIENT
  Age: 70 Year
  Sex: Female

DRUGS (2)
  1. XIFAXAN [Suspect]
     Active Substance: RIFAXIMIN
     Indication: Liver disorder
     Route: 048
  2. MORPHINE [Concomitant]
     Active Substance: MORPHINE
     Indication: Product used for unknown indication

REACTIONS (5)
  - Death [Fatal]
  - Hepatic failure [Unknown]
  - Pain [Unknown]
  - Discomfort [Unknown]
  - Hospice care [Unknown]

NARRATIVE: CASE EVENT DATE: 20220501
